FAERS Safety Report 9865163 (Version 1)
Quarter: 2014Q1

REPORT INFORMATION
  Report Type: Spontaneous
  Country: US (occurrence: US)
  Receive Date: 20140203
  Receipt Date: 20140203
  Transmission Date: 20141002
  Serious: No
  Sender: FDA-Public Use
  Company Number: US-ALLERGAN-1303491US

PATIENT
  Age: 70 Year
  Sex: Female

DRUGS (6)
  1. RESTASIS [Suspect]
     Indication: DRY EYE
     Dosage: 2 GTT, BID
     Route: 047
     Dates: start: 201302
  2. RESTASIS [Suspect]
     Dosage: UNK
     Route: 047
  3. UNSPECIFIED STEROID EYEDROP [Suspect]
     Indication: DRY EYE
     Dosage: 2 GTT, QID
     Route: 047
     Dates: start: 201302
  4. UNSPECIFIED SERUM EYEDROPS [Suspect]
     Indication: DRY EYE
     Dosage: 2 GTT, QID
     Route: 047
     Dates: start: 201302
  5. CORTISONE INJECTIONS [Concomitant]
     Indication: PRODUCT USED FOR UNKNOWN INDICATION
     Dosage: UNK UNK, Q MONTH
  6. CREAM, POSSIBLY STEROID [Concomitant]
     Indication: PAIN
     Dosage: UNK, Q MONTH
     Route: 061

REACTIONS (3)
  - Eye irritation [Not Recovered/Not Resolved]
  - Vision blurred [Unknown]
  - Eye pain [Unknown]
